FAERS Safety Report 24806754 (Version 2)
Quarter: 2025Q1

REPORT INFORMATION
  Report Type: Spontaneous
  Country: US (occurrence: US)
  Receive Date: 20250104
  Receipt Date: 20250111
  Transmission Date: 20250409
  Serious: Yes (Hospitalization)
  Sender: AMNEAL
  Company Number: US-AMNEAL PHARMACEUTICALS-2024-AMRX-04686

PATIENT
  Age: 55 Year
  Sex: Female
  Weight: 97.506 kg

DRUGS (2)
  1. ESTRADIOL TRANSDERMAL SYSTEM [Suspect]
     Active Substance: ESTRADIOL
     Indication: Product used for unknown indication
     Route: 065
     Dates: start: 20241217
  2. PROGESTERONE [Suspect]
     Active Substance: PROGESTERONE
     Indication: Product used for unknown indication
     Route: 048
     Dates: start: 20241217

REACTIONS (7)
  - Emotional distress [Unknown]
  - Vertigo positional [Unknown]
  - Dizziness [Unknown]
  - Impaired driving ability [Unknown]
  - Nystagmus [Recovering/Resolving]
  - Gait disturbance [Unknown]
  - Drug interaction [Unknown]

NARRATIVE: CASE EVENT DATE: 20241201
